FAERS Safety Report 19131983 (Version 1)
Quarter: 2021Q2

REPORT INFORMATION
  Report Type: Spontaneous
  Country: SE (occurrence: SE)
  Receive Date: 20210413
  Receipt Date: 20210413
  Transmission Date: 20210717
  Serious: Yes (Other)
  Sender: FDA-Public Use
  Company Number: SE-TEVA-2021-SE-1898317

PATIENT
  Sex: Female

DRUGS (1)
  1. CAPECITABINE TEVA [Suspect]
     Active Substance: CAPECITABINE
     Route: 048

REACTIONS (11)
  - Vomiting [Unknown]
  - Subdural haemorrhage [Unknown]
  - Venous thrombosis limb [Unknown]
  - Diarrhoea [Unknown]
  - Intensive care unit acquired weakness [Unknown]
  - Sepsis [Unknown]
  - Cerebral venous thrombosis [Unknown]
  - Pulmonary embolism [Unknown]
  - Gastrointestinal haemorrhage [Unknown]
  - Colitis [Unknown]
  - Cerebral haemorrhage [Unknown]
